FAERS Safety Report 13008611 (Version 8)
Quarter: 2017Q1

REPORT INFORMATION
  Report Type: Spontaneous
  Country: US (occurrence: US)
  Receive Date: 20161208
  Receipt Date: 20170314
  Transmission Date: 20170428
  Serious: Yes (Other)
  Sender: FDA-Public Use
  Company Number: US-PFIZER INC-2016526523

PATIENT
  Age: 80 Year
  Sex: Male
  Weight: 94.8 kg

DRUGS (14)
  1. SIMVASTATIN. [Concomitant]
     Active Substance: SIMVASTATIN
     Dosage: 40 MG, DAILY
     Route: 048
  2. AMLODIPINE [Concomitant]
     Active Substance: AMLODIPINE BESYLATE
     Dosage: UNK
  3. LYRICA [Concomitant]
     Active Substance: PREGABALIN
     Indication: NEURALGIA
     Dosage: 75 MG, 2X/DAY
     Route: 048
  4. PANTOPRAZOLE SODIUM. [Concomitant]
     Active Substance: PANTOPRAZOLE SODIUM
     Dosage: 40 MG, 1X/DAY
     Route: 048
  5. CLONIDINE HCL [Concomitant]
     Active Substance: CLONIDINE HYDROCHLORIDE
     Indication: HYPERTENSION
     Dosage: 0.2 MG, AS NEEDED (DAILY)
     Route: 048
  6. SUTENT [Suspect]
     Active Substance: SUNITINIB MALATE
     Indication: RENAL CELL CARCINOMA STAGE IV
     Dosage: 50 MG, CYCLIC (28 DAYS ON/14 DAYS OFF)
     Dates: start: 20161125
  7. LISINOPRIL. [Concomitant]
     Active Substance: LISINOPRIL
     Dosage: 20 MG, 2X/DAY
     Route: 048
  8. LOSARTAN POTASSIUM. [Concomitant]
     Active Substance: LOSARTAN POTASSIUM
     Dosage: 50 MG, DAILY
  9. SUTENT [Suspect]
     Active Substance: SUNITINIB MALATE
     Dosage: 1 DF, CYCLIC ONE EACH DAY X 4 WEEKS, REPEAT EVERY 6 WEEKS (4 WEEKS ON TREATMENT, THEN TWO WEEKS OFF)
     Route: 048
  10. CIALIS [Concomitant]
     Active Substance: TADALAFIL
     Dosage: 5 MG, AS NEEDED (1 TABLET PO QD PRN)
     Route: 048
  11. METOPROLOL TARTRATE. [Concomitant]
     Active Substance: METOPROLOL TARTRATE
     Indication: HYPERTENSION
     Dosage: 25 MG, 2X/DAY
     Route: 048
  12. PRILOSEC [Concomitant]
     Active Substance: OMEPRAZOLE MAGNESIUM
     Dosage: UNK
  13. LOSARTAN POTASSIUM. [Concomitant]
     Active Substance: LOSARTAN POTASSIUM
     Indication: HYPERTENSION
     Dosage: UNK (TAKE HALF TAB DAILY X 3 WEEKS AND THEN INCREASE 1 TAB DAILY)
  14. LOSARTAN. [Concomitant]
     Active Substance: LOSARTAN
     Indication: HYPERTENSION
     Dosage: UNK (50MG TAB WITH POSSIBLE TAPER UP TO 100MG)

REACTIONS (15)
  - Condition aggravated [Not Recovered/Not Resolved]
  - Anal inflammation [Recovered/Resolved]
  - Myalgia [Unknown]
  - Joint stiffness [Unknown]
  - Musculoskeletal pain [Unknown]
  - Hypertension [Not Recovered/Not Resolved]
  - Weight decreased [Unknown]
  - Pain in extremity [Unknown]
  - Skin exfoliation [Unknown]
  - Weight increased [Unknown]
  - Memory impairment [Unknown]
  - Dysgeusia [Not Recovered/Not Resolved]
  - Diarrhoea [Unknown]
  - Arthralgia [Unknown]
  - Back pain [Not Recovered/Not Resolved]
